FAERS Safety Report 22306801 (Version 5)
Quarter: 2023Q4

REPORT INFORMATION
  Report Type: Report from Study
  Country: NZ (occurrence: NZ)
  Receive Date: 20230511
  Receipt Date: 20231107
  Transmission Date: 20240110
  Serious: No
  Sender: FDA-Public Use
  Company Number: NZ-ABBVIE-4749373

PATIENT
  Age: 54 Year
  Sex: Female

DRUGS (18)
  1. UPADACITINIB [Suspect]
     Active Substance: UPADACITINIB
     Indication: Dermatitis atopic
     Route: 048
     Dates: start: 20191004, end: 20200128
  2. UPADACITINIB [Suspect]
     Active Substance: UPADACITINIB
     Indication: Dermatitis atopic
     Route: 048
     Dates: start: 20200129
  3. LORATADINE [Concomitant]
     Active Substance: LORATADINE
     Indication: Urticaria
     Dosage: TIME INTERVAL: AS NECESSARY
     Route: 048
     Dates: start: 199003
  4. SORBALENE [Concomitant]
     Indication: Dry skin prophylaxis
     Dosage: 1 APPLICATION
     Route: 061
     Dates: start: 201405
  5. BUTACORT [Concomitant]
     Indication: Rhinitis allergic
     Dosage: TIME INTERVAL: AS NECESSARY: INHALER
     Route: 045
     Dates: start: 200409
  6. SERETIDE [Concomitant]
     Active Substance: FLUTICASONE PROPIONATE\SALMETEROL XINAFOATE
     Indication: Asthma
     Dosage: 250/50 UG
     Route: 055
     Dates: start: 200907
  7. DUOLIN HFA [Concomitant]
     Indication: Asthma
     Dosage: TIME INTERVAL: AS NECESSARY
     Route: 055
     Dates: start: 201209
  8. OMEPRAZOLE [Concomitant]
     Active Substance: OMEPRAZOLE
     Indication: Gastrooesophageal reflux disease
     Dosage: TIME INTERVAL: AS NECESSARY
     Route: 048
     Dates: start: 200507
  9. COLOXY + SENNA [Concomitant]
     Indication: Constipation
     Dosage: TIME INTERVAL: AS NECESSARY
     Route: 048
     Dates: start: 200306
  10. LIQUOR PICIS CARBONIS IN CETOMACROGOL [Concomitant]
     Indication: Dry skin prophylaxis
     Dosage: TIME INTERVAL: AS NECESSARY
     Route: 061
     Dates: start: 20190927
  11. ELOCON [Concomitant]
     Active Substance: MOMETASONE FUROATE
     Indication: Dermatitis atopic
     Dosage: 1 APPLICATION
     Route: 061
     Dates: start: 20200320
  12. HYDROCORTISONE [Concomitant]
     Active Substance: HYDROCORTISONE
     Indication: Dermatitis atopic
     Dosage: 1%, 1 APPLICATION
     Route: 061
     Dates: start: 20200320
  13. ESTRIOL [Concomitant]
     Active Substance: ESTRIOL
     Indication: Atrophic vulvovaginitis
     Dosage: TIME INTERVAL: AS NECESSARY: 1 PESSARY
     Route: 067
     Dates: start: 20201222
  14. CRYSTADERM [Concomitant]
     Indication: Acne
     Dosage: 1 APPLICATION
     Route: 061
     Dates: start: 20201222
  15. DOXYCYCLINE [Concomitant]
     Active Substance: DOXYCYCLINE
     Indication: Rosacea
     Dosage: TIME INTERVAL: AS NECESSARY
     Route: 048
     Dates: start: 20210611
  16. AMITRIPTYLINE [Concomitant]
     Active Substance: AMITRIPTYLINE
     Indication: Insomnia
     Route: 048
     Dates: start: 20210916
  17. DOSE + CO BOVINE COLLAGEN [Concomitant]
     Indication: Nutritional supplementation
     Route: 048
     Dates: start: 20211211
  18. ACETAMINOPHEN [Concomitant]
     Active Substance: ACETAMINOPHEN
     Indication: Lower respiratory tract infection
     Route: 048
     Dates: start: 20221126, end: 20221230

REACTIONS (1)
  - Drug-induced liver injury [Recovered/Resolved]

NARRATIVE: CASE EVENT DATE: 20221230
